FAERS Safety Report 9870262 (Version 3)
Quarter: 2015Q3

REPORT INFORMATION
  Report Type: Spontaneous
  Country: US (occurrence: US)
  Receive Date: 20140205
  Receipt Date: 20150917
  Transmission Date: 20151125
  Serious: Yes (Other)
  Sender: FDA-Public Use
  Company Number: US-SA-2013SA135207

PATIENT
  Age: 42 Year
  Sex: Male
  Weight: 165.1 kg

DRUGS (28)
  1. HECTOROL [Suspect]
     Active Substance: DOXERCALCIFEROL
     Indication: HYPERPARATHYROIDISM SECONDARY
     Dosage: DOSE: 4MCG/2ML
     Route: 042
     Dates: start: 20131220, end: 20131220
  2. AMLODIPINE [Concomitant]
     Active Substance: AMLODIPINE BESYLATE
     Route: 048
     Dates: start: 20121026, end: 20130525
  3. ATORVASTATIN [Concomitant]
     Active Substance: ATORVASTATIN
     Route: 048
     Dates: start: 20130312, end: 20130525
  4. LANTUS SOLOSTAR [Concomitant]
     Active Substance: INSULIN GLARGINE
     Route: 058
  5. RENVELA [Concomitant]
     Active Substance: SEVELAMER CARBONATE
     Route: 048
  6. LOSARTAN. [Concomitant]
     Active Substance: LOSARTAN
     Route: 048
     Dates: start: 20130610, end: 20140121
  7. EPOGEN [Concomitant]
     Active Substance: ERYTHROPOIETIN
     Indication: ANAEMIA
     Dosage: DOSE:14000 UNIT(S)
  8. TOPROL XL [Concomitant]
     Active Substance: METOPROLOL SUCCINATE
     Route: 048
  9. HECTOROL [Suspect]
     Active Substance: DOXERCALCIFEROL
     Indication: HYPERPARATHYROIDISM SECONDARY
     Dosage: DOSE:2 MICROGRAM(S)/MILLILITRE
     Route: 065
     Dates: start: 20131222, end: 20131222
  10. NOVOLOG [Concomitant]
     Active Substance: INSULIN ASPART
     Dosage: DOSE:5 UNIT(S)
  11. MYCOPHENOLATE SODIUM [Concomitant]
     Active Substance: MYCOPHENOLATE SODIUM
     Route: 048
  12. PROTONIX [Concomitant]
     Active Substance: PANTOPRAZOLE SODIUM
     Route: 048
  13. ZYRTEC [Concomitant]
     Active Substance: CETIRIZINE HYDROCHLORIDE
     Route: 048
     Dates: end: 20140121
  14. MONTELUKAST [Concomitant]
     Active Substance: MONTELUKAST SODIUM
     Route: 048
     Dates: start: 20130530, end: 20140121
  15. HEPARIN [Concomitant]
     Active Substance: HEPARIN SODIUM
  16. TYLENOL [Concomitant]
     Active Substance: ACETAMINOPHEN
     Route: 048
     Dates: end: 20140121
  17. OMEPRAZOLE. [Concomitant]
     Active Substance: OMEPRAZOLE
     Route: 048
     Dates: start: 20130530, end: 20140121
  18. BYSTOLIC [Concomitant]
     Active Substance: NEBIVOLOL HYDROCHLORIDE
     Route: 048
     Dates: start: 20130530, end: 20140121
  19. CLONIDINE. [Concomitant]
     Active Substance: CLONIDINE
     Route: 048
  20. FLUTICASONE [Concomitant]
     Active Substance: FLUTICASONE\FLUTICASONE PROPIONATE
     Dates: start: 20130627, end: 20130627
  21. PROGRAF [Concomitant]
     Active Substance: TACROLIMUS\TACROLIMUS ANHYDROUS
     Route: 048
  22. VALCYTE [Concomitant]
     Active Substance: VALGANCICLOVIR HYDROCHLORIDE
     Route: 048
  23. VITAMIN B NOS/ASCORBIC ACID [Concomitant]
     Dates: start: 20121227, end: 20140121
  24. HECTOROL [Suspect]
     Active Substance: DOXERCALCIFEROL
     Indication: HYPERPARATHYROIDISM SECONDARY
     Dosage: DOSE:2 MICROGRAM(S)/MILLILITRE
     Route: 065
     Dates: start: 20131220, end: 20131220
  25. OXYCODONE [Concomitant]
     Active Substance: OXYCODONE
     Indication: PAIN
     Route: 048
  26. BACTRIM [Concomitant]
     Active Substance: SULFAMETHOXAZOLE\TRIMETHOPRIM
  27. PREDNISONE. [Concomitant]
     Active Substance: PREDNISONE
  28. SENSIPAR [Concomitant]
     Active Substance: CINACALCET HYDROCHLORIDE
     Route: 048
     Dates: end: 20140121

REACTIONS (17)
  - Hypersensitivity [Recovered/Resolved]
  - Chest discomfort [Recovered/Resolved]
  - Dyspnoea [Recovered/Resolved]
  - Cough [Recovered/Resolved]
  - Fatigue [Unknown]
  - Arthralgia [Unknown]
  - Mobility decreased [Recovered/Resolved]
  - Myalgia [Recovered/Resolved]
  - Oedema peripheral [Unknown]
  - Musculoskeletal stiffness [Recovered/Resolved]
  - Feeling cold [Unknown]
  - Feeling abnormal [Unknown]
  - Asthenia [Unknown]
  - Headache [Recovered/Resolved]
  - Nausea [Unknown]
  - Back pain [Recovered/Resolved]
  - Discomfort [Unknown]

NARRATIVE: CASE EVENT DATE: 201312
